FAERS Safety Report 5957952-8 (Version None)
Quarter: 2008Q4

REPORT INFORMATION
  Report Type: 
  Country: None (occurrence: None)
  Receive Date: 20081119
  Receipt Date: 20081113
  Transmission Date: 20090506
  Serious: Yes (Other)
  Sender: FDA-Public Use
  Company Number: US-JNJFOC-20081103312

PATIENT
  Age: 45 Year
  Sex: Female

DRUGS (4)
  1. REMICADE [Suspect]
     Indication: CROHN'S DISEASE
     Route: 042
  2. TOPROL-XL [Concomitant]
  3. ALTACE [Concomitant]
  4. TRIPHASYL [Concomitant]

REACTIONS (1)
  - CARDIOMYOPATHY [None]
